FAERS Safety Report 9997395 (Version 1)
Quarter: 2014Q1

REPORT INFORMATION
  Report Type: Spontaneous
  Country: US (occurrence: None)
  Receive Date: 20140218
  Receipt Date: 20140218
  Transmission Date: 20141002
  Serious: Yes (Other)
  Sender: FDA-Public Use
  Company Number: 1000051737

PATIENT
  Sex: Female

DRUGS (2)
  1. VIIBRYD [Suspect]
     Route: 048
  2. VIIBRYD [Suspect]
     Route: 048

REACTIONS (2)
  - Hallucination [None]
  - Paraesthesia [None]
